FAERS Safety Report 21484835 (Version 1)
Quarter: 2022Q4

REPORT INFORMATION
  Report Type: Spontaneous
  Country: US (occurrence: None)
  Receive Date: 20221019
  Receipt Date: 20221019
  Transmission Date: 20230113
  Serious: Yes (Hospitalization)
  Sender: FDA-Public Use
  Company Number: None

PATIENT
  Age: 80 Year
  Sex: Female
  Weight: 64.5 kg

DRUGS (1)
  1. BACLOFEN [Suspect]
     Active Substance: BACLOFEN
     Dosage: FREQUENCY : TWICE A DAY;?
     Route: 048
     Dates: start: 20221013, end: 20221017

REACTIONS (4)
  - Mental status changes [None]
  - Confusional state [None]
  - Encephalopathy [None]
  - Vomiting [None]

NARRATIVE: CASE EVENT DATE: 20221017
